FAERS Safety Report 15337565 (Version 2)
Quarter: 2018Q3

REPORT INFORMATION
  Report Type: Spontaneous
  Country: JP (occurrence: JP)
  Receive Date: 20180831
  Receipt Date: 20180911
  Transmission Date: 20181010
  Serious: Yes (Other)
  Sender: FDA-Public Use
  Company Number: JP-009507513-1808JPN002119J

PATIENT
  Age: 35 Year
  Sex: Female
  Weight: 53 kg

DRUGS (2)
  1. ESLAX INTRAVENOUS 25MG/2.5ML [Suspect]
     Active Substance: ROCURONIUM BROMIDE
     Indication: ANAESTHESIA PROCEDURE
     Dosage: 50 MG, UNK
     Route: 042
  2. BRIDION [Suspect]
     Active Substance: SUGAMMADEX
     Indication: DYSPNOEA
     Dosage: 200 MG, UNK
     Route: 042

REACTIONS (4)
  - Anaphylactic shock [Unknown]
  - Dyspnoea [Unknown]
  - Abortion [Unknown]
  - Exposure during pregnancy [Unknown]
